FAERS Safety Report 20222565 (Version 1)
Quarter: 2021Q4

REPORT INFORMATION
  Report Type: Spontaneous
  Country: US (occurrence: US)
  Receive Date: 20211223
  Receipt Date: 20211223
  Transmission Date: 20220303
  Serious: No
  Sender: FDA-Public Use
  Company Number: US-ALVOGEN-2021-ALVOGEN-117955

PATIENT
  Sex: Male
  Weight: 96.16 kg

DRUGS (1)
  1. HYDROCODONE BITARTRATE [Suspect]
     Active Substance: HYDROCODONE BITARTRATE
     Indication: Headache

REACTIONS (4)
  - Nausea [Unknown]
  - Wrong dose [Unknown]
  - Feeling abnormal [Unknown]
  - Wrong product administered [Unknown]
